FAERS Safety Report 23932491 (Version 3)
Quarter: 2024Q3

REPORT INFORMATION
  Report Type: Report from Study
  Country: US (occurrence: US)
  Receive Date: 20240603
  Receipt Date: 20240726
  Transmission Date: 20241017
  Serious: Yes (Death, Other)
  Sender: OTSUKA
  Company Number: US-OTSUKA-2024_011432

PATIENT
  Age: 68 Year
  Sex: Male

DRUGS (4)
  1. TOLVAPTAN [Suspect]
     Active Substance: TOLVAPTAN
     Indication: Congenital cystic kidney disease
     Dosage: 30 MG, QD
     Route: 048
  2. TOLVAPTAN [Suspect]
     Active Substance: TOLVAPTAN
     Dosage: 15 MG, QD
     Route: 048
  3. TOLVAPTAN [Suspect]
     Active Substance: TOLVAPTAN
     Dosage: 15 MG, QD
     Route: 048
  4. TOLVAPTAN [Suspect]
     Active Substance: TOLVAPTAN
     Dosage: 15 MG, QD
     Route: 048

REACTIONS (6)
  - Death [Fatal]
  - Ear infection [Unknown]
  - Balance disorder [Unknown]
  - Thyroid hormones decreased [Unknown]
  - Oedema [Unknown]
  - Underdose [Unknown]

NARRATIVE: CASE EVENT DATE: 20240501
